FAERS Safety Report 10227460 (Version 1)
Quarter: 2014Q2

REPORT INFORMATION
  Report Type: Report from Study
  Country: VE (occurrence: VE)
  Receive Date: 20140610
  Receipt Date: 20140610
  Transmission Date: 20141212
  Serious: Yes (Hospitalization)
  Sender: FDA-Public Use
  Company Number: PHHY2014VE069558

PATIENT
  Age: 83 Year
  Sex: Female

DRUGS (2)
  1. ONBREZ [Suspect]
     Indication: CHRONIC OBSTRUCTIVE PULMONARY DISEASE
     Dosage: 150 UG, DAILY
     Route: 055
     Dates: start: 2012, end: 20140601
  2. SPIRIVA [Concomitant]
     Dosage: 8 UG, DAILY
     Dates: start: 2013

REACTIONS (3)
  - Pulmonary oedema [Recovered/Resolved]
  - Lower respiratory tract infection [Recovered/Resolved]
  - Fatigue [Unknown]
